FAERS Safety Report 9125223 (Version 1)
Quarter: 2013Q1

REPORT INFORMATION
  Report Type: Spontaneous
  Country: PH (occurrence: PH)
  Receive Date: 20130117
  Receipt Date: 20130117
  Transmission Date: 20140127
  Serious: Yes (Hospitalization, Other)
  Sender: FDA-Public Use
  Company Number: PH-PFIZER INC-2013016921

PATIENT
  Age: 60 Year
  Sex: Female
  Weight: 59.86 kg

DRUGS (11)
  1. LYRICA [Suspect]
     Indication: NERVE DEGENERATION
     Dosage: , 2X/DAY
     Route: 048
     Dates: start: 2012, end: 201207
  2. LYRICA [Suspect]
     Dosage: 75 MG, 1X/DAY BEFORE BEDTIME
     Dates: start: 201207, end: 201210
  3. LYRICA [Suspect]
     Dosage: 75 MG, 1X/DAY BEFORE BEDTIME
     Dates: start: 201301
  4. METFORMIN [Concomitant]
     Indication: BLOOD GLUCOSE INCREASED
     Dosage: UNK
  5. ROSUVASTATIN [Concomitant]
     Indication: HYPERTENSION
     Dosage: UNK
  6. CARDIOSEL [Concomitant]
     Indication: HYPERTENSION
     Dosage: UNK
  7. LIFEZAR [Concomitant]
     Indication: HYPERTENSION
     Dosage: UNK
  8. PLAVIX [Concomitant]
     Indication: HYPERTENSION
     Dosage: UNK
  9. PLENDIL [Concomitant]
     Indication: HYPERTENSION
  10. NEUROGEN-E [Concomitant]
     Indication: VITAMIN SUPPLEMENTATION
  11. SIMVASTATIN [Suspect]

REACTIONS (7)
  - Cholecystitis [Recovered/Resolved]
  - Uterine atrophy [Recovered/Resolved]
  - Ulcer [Recovered/Resolved]
  - Gastritis [Recovered/Resolved]
  - Spinal disorder [Unknown]
  - Intermittent claudication [Unknown]
  - Dizziness [Recovered/Resolved]
